FAERS Safety Report 25959032 (Version 1)
Quarter: 2025Q4

REPORT INFORMATION
  Report Type: Spontaneous
  Country: US (occurrence: US)
  Receive Date: 20251025
  Receipt Date: 20251025
  Transmission Date: 20260117
  Serious: No
  Sender: ALEXION PHARMACEUTICALS
  Company Number: US-AstraZeneca-CH-00978142A

PATIENT

DRUGS (1)
  1. FARXIGA [Suspect]
     Active Substance: DAPAGLIFLOZIN PROPANEDIOL
     Route: 065

REACTIONS (6)
  - Fatigue [Unknown]
  - Weight decreased [Unknown]
  - Muscle spasms [Unknown]
  - Genital swelling [Unknown]
  - Asthenia [Unknown]
  - Decreased appetite [Unknown]
